FAERS Safety Report 5766800-0 (Version None)
Quarter: 2008Q2

REPORT INFORMATION
  Report Type: 
  Country: None (occurrence: None)
  Receive Date: 20080612
  Receipt Date: 20080604
  Transmission Date: 20081010
  Serious: Yes (Hospitalization, Other)
  Sender: FDA-Public Use
  Company Number: PHHY2008BR10091

PATIENT
  Sex: Female
  Weight: 70 kg

DRUGS (2)
  1. SANDOSTATIN LAR [Suspect]
     Indication: ACROMEGALY
     Dosage: 30 MG, QMO
     Route: 030
     Dates: start: 20070427
  2. SANDOSTATIN LAR [Suspect]
     Dosage: 20 MG, UNK
     Route: 030
     Dates: start: 20080509

REACTIONS (4)
  - BLOOD GROWTH HORMONE ABNORMAL [None]
  - INSULIN-LIKE GROWTH FACTOR INCREASED [None]
  - PITUITARY TUMOUR BENIGN [None]
  - SURGERY [None]
